FAERS Safety Report 24073841 (Version 1)
Quarter: 2024Q3

REPORT INFORMATION
  Report Type: Spontaneous
  Country: GR (occurrence: GR)
  Receive Date: 20240710
  Receipt Date: 20240710
  Transmission Date: 20241017
  Serious: No
  Sender: PIERRE FABRE MEDICAMENT
  Company Number: GR-PFM-2019-11218

PATIENT
  Age: 2 Month
  Sex: Female

DRUGS (2)
  1. PROPRANOLOL HYDROCHLORIDE [Suspect]
     Active Substance: PROPRANOLOL HYDROCHLORIDE
     Indication: Cardiac haemangioma benign
     Dosage: UNK
     Route: 048
  2. PROPRANOLOL HYDROCHLORIDE [Suspect]
     Active Substance: PROPRANOLOL HYDROCHLORIDE
     Indication: Off label use
     Dosage: TITRATED TO THE DOSE OF 3MG/KG/DAY DIVIDED IN THREE DOSES
     Route: 048

REACTIONS (4)
  - Off label use [Unknown]
  - Drug titration error [Unknown]
  - Inappropriate schedule of product administration [Unknown]
  - Product use issue [Unknown]
